FAERS Safety Report 26009445 (Version 1)
Quarter: 2025Q4

REPORT INFORMATION
  Report Type: Other
  Country: US (occurrence: US)
  Receive Date: 20251107
  Receipt Date: 20251107
  Transmission Date: 20260118
  Serious: Yes (Hospitalization)
  Sender: INTERCEPT PHARMACEUTICALS
  Company Number: US-INTERCEPTP-2025-AER-07385

PATIENT
  Sex: Female
  Weight: 38.1 kg

DRUGS (12)
  1. OCALIVA [Suspect]
     Active Substance: OBETICHOLIC ACID
     Indication: Primary biliary cholangitis
     Dates: start: 201905
  2. IMIPRAMINE HYDROCHLORIDE [Concomitant]
     Active Substance: IMIPRAMINE HYDROCHLORIDE
  3. PENICILLIN V POTASSIUM [Concomitant]
     Active Substance: PENICILLIN V POTASSIUM
  4. PAROXETINE HYDROCHLORIDE [Concomitant]
     Active Substance: PAROXETINE HYDROCHLORIDE
  5. ATORVASTATIN CALCIUM [Concomitant]
     Active Substance: ATORVASTATIN CALCIUM
  6. URSODIOL [Concomitant]
     Active Substance: URSODIOL
  7. OXYBUTYNIN CHLORIDE [Concomitant]
     Active Substance: OXYBUTYNIN CHLORIDE
  8. MIRALAX [Concomitant]
     Active Substance: POLYETHYLENE GLYCOL 3350
  9. Metformin ER osmotic [Concomitant]
  10. LINZESS [Concomitant]
     Active Substance: LINACLOTIDE
  11. FERROUS SULFATE [Concomitant]
     Active Substance: FERROUS SULFATE
  12. DEXILANT [Concomitant]
     Active Substance: DEXLANSOPRAZOLE

REACTIONS (1)
  - Hospitalisation [Recovered/Resolved]
